FAERS Safety Report 5402925-7 (Version None)
Quarter: 2007Q3

REPORT INFORMATION
  Report Type: 
  Country: None (occurrence: None)
  Receive Date: 20070801
  Receipt Date: 20070724
  Transmission Date: 20080115
  Serious: Yes (Hospitalization)
  Sender: FDA-Public Use
  Company Number: US-JNJFOC-20070705674

PATIENT
  Age: 23 Year
  Sex: Female
  Weight: 65.77 kg

DRUGS (5)
  1. INVEGA [Suspect]
     Indication: PSYCHOTIC DISORDER
     Route: 048
  2. DEPAKOTE [Concomitant]
     Route: 048
  3. DEPAKOTE [Concomitant]
     Route: 048
  4. EFFEXOR [Concomitant]
     Route: 048
  5. COGENTIN [Concomitant]
     Route: 048

REACTIONS (1)
  - DRUG INEFFECTIVE [None]
